FAERS Safety Report 5010299-9 (Version None)
Quarter: 2006Q2

REPORT INFORMATION
  Report Type: 
  Country: None (occurrence: None)
  Receive Date: 20060517
  Receipt Date: 20060316
  Transmission Date: 20061013
  Serious: Yes (Hospitalization)
  Sender: FDA-Public Use
  Company Number: WSDF_00528

PATIENT
  Age: 67 Year
  Sex: Female
  Weight: 70 kg

DRUGS (5)
  1. WINRHO SDF [Suspect]
     Indication: IDIOPATHIC THROMBOCYTOPENIC PURPURA
     Dosage: 50 MCG/KG ONCE IV
     Route: 042
     Dates: start: 20040113, end: 20040113
  2. GLUCOTROL [Concomitant]
  3. COZAAR [Concomitant]
  4. SYNTHROID [Concomitant]
  5. ELAVIL [Concomitant]

REACTIONS (1)
  - HAEMOLYSIS [None]
